FAERS Safety Report 8848652 (Version 5)
Quarter: 2012Q4

REPORT INFORMATION
  Report Type: 
  Country: CA (occurrence: CA)
  Receive Date: 20121018
  Receipt Date: 20121128
  Transmission Date: 20130627
  Serious: Yes (Hospitalization)
  Sender: FDA-Public Use
  Company Number: CA-ALEXION PHARMACEUTICALS INC.-A201201915

PATIENT
  Age: 28 Year
  Sex: Female
  Weight: 68.03 kg

DRUGS (15)
  1. SOLIRIS 300MG [Suspect]
     Indication: PAROXYSMAL NOCTURNAL HAEMOGLOBINURIA
     Dosage: 600 mg, qw
     Route: 042
     Dates: start: 20111124, end: 20111215
  2. SOLIRIS 300MG [Suspect]
     Dosage: 900 mg, q2w
     Route: 042
     Dates: start: 20111222, end: 20120912
  3. SOLIRIS 300MG [Suspect]
     Dosage: 600 mg, qw
     Route: 042
     Dates: start: 20121115
  4. FLAGYL [Suspect]
     Indication: CLOSTRIDIAL INFECTION
     Dosage: UNK
     Route: 042
     Dates: start: 20121009, end: 20121012
  5. FLAGYL [Suspect]
     Route: 048
  6. PREDNISONE [Concomitant]
     Indication: ABDOMINAL PAIN UPPER
     Dosage: 25 mg, prn
  7. COUMADIN [Concomitant]
     Dosage: 9 mg, qd
  8. FOLIC ACID [Concomitant]
     Dosage: 5 mg, qd
  9. DIDROCAL [Concomitant]
     Dosage: UNK, qd
  10. VITAMIN A [Concomitant]
     Dosage: UNK, qd
  11. VITAMIN B12 [Concomitant]
     Dosage: UNK, qd
  12. VITAMIN C [Concomitant]
     Dosage: UNK, qd
  13. VITAMIN D [Concomitant]
     Dosage: UNK, qd
  14. VITAMIN E [Concomitant]
     Dosage: UNK, qd
  15. ZINC [Concomitant]
     Dosage: UNK, qd

REACTIONS (10)
  - Clostridium difficile infection [Recovered/Resolved]
  - Malaise [Unknown]
  - Pain [Not Recovered/Not Resolved]
  - Gingival swelling [Not Recovered/Not Resolved]
  - Diarrhoea [Recovered/Resolved]
  - Nausea [Not Recovered/Not Resolved]
  - Decreased appetite [Not Recovered/Not Resolved]
  - Pyrexia [Recovered/Resolved]
  - Fatigue [Not Recovered/Not Resolved]
  - Abdominal pain upper [Recovered/Resolved]
